FAERS Safety Report 10606409 (Version 2)
Quarter: 2015Q1

REPORT INFORMATION
  Report Type: Report from Study
  Country: US (occurrence: US)
  Receive Date: 20141125
  Receipt Date: 20150121
  Transmission Date: 20150720
  Serious: No
  Sender: FDA-Public Use
  Company Number: US-AMGEN-USASL2014091130

PATIENT
  Age: 56 Year
  Sex: Male
  Weight: 116.1 kg

DRUGS (13)
  1. DOXYCYCLINE HYCLATE. [Concomitant]
     Active Substance: DOXYCYCLINE HYCLATE
     Dosage: 100 MG, BID
     Route: 048
     Dates: start: 20141228
  2. MUPIROCIN. [Concomitant]
     Active Substance: MUPIROCIN
     Dosage: 2 %, UNK
     Dates: start: 20141228
  3. AMOXICILLIN AND CLAVULANATE POTASSIUM [Concomitant]
     Active Substance: AMOXICILLIN\CLAVULANATE POTASSIUM
     Dosage: 875-125 MG, TAKE ONE TABLET TWICE A DAY WITH FOOD FOR 7 DAYS
     Route: 048
     Dates: start: 20141104
  4. ENBREL [Suspect]
     Active Substance: ETANERCEPT
     Indication: RHEUMATOID ARTHRITIS
     Dosage: 50 MG, QWK
     Route: 058
     Dates: start: 20140730
  5. CERA [Concomitant]
     Dosage: APPLY TO SKIN FREQUENTLY EVERY 4 TO 6 HOURS
     Dates: start: 20140723, end: 20150718
  6. FENOFIBRIC ACID. [Concomitant]
     Active Substance: FENOFIBRIC ACID
     Dosage: 135 MG, UNK
     Route: 048
     Dates: start: 20130927
  7. ASPIRIN                            /00002701/ [Concomitant]
     Active Substance: ASPIRIN
     Dosage: 81 MG, UNK
     Route: 048
  8. FARXIGA [Concomitant]
     Active Substance: DAPAGLIFLOZIN PROPANEDIOL
     Dosage: 10 MG, UNK
     Route: 048
     Dates: start: 20140825
  9. AMLODIPINE BESILATE W/BENAZEPRIL HYDROCHLORID [Concomitant]
     Dosage: UNK 5-20 MG, UNK
     Route: 048
     Dates: start: 20090508
  10. CARVEDILOL. [Concomitant]
     Active Substance: CARVEDILOL
     Dosage: 25 MG, TAKE ONE TABLET BY MOUTH TWICE DAILY
     Route: 048
     Dates: start: 20140217
  11. ENBREL [Suspect]
     Active Substance: ETANERCEPT
     Indication: PSORIASIS
  12. EPINEPHRINE. [Concomitant]
     Active Substance: EPINEPHRINE
     Dosage: 0.3 MG, UNK
     Dates: start: 20130806
  13. TAMSULOSIN HCL [Concomitant]
     Active Substance: TAMSULOSIN
     Dosage: 0.4 MG, UNK
     Route: 048
     Dates: start: 20130206

REACTIONS (1)
  - Pyrexia [Unknown]
